FAERS Safety Report 4822884-5 (Version None)
Quarter: 2005Q4

REPORT INFORMATION
  Report Type: 
  Country: None (occurrence: None)
  Receive Date: 20051104
  Receipt Date: 20050906
  Transmission Date: 20060501
  Serious: Yes (Hospitalization)
  Sender: FDA-Public Use
  Company Number: 0205026

PATIENT
  Age: 85 Year
  Sex: Male

DRUGS (13)
  1. DEPODUR [Suspect]
     Indication: POSTOPERATIVE ANALGESIA
     Dosage: 12 MG (ONCE), EPIDURAL
     Route: 008
     Dates: start: 20050810, end: 20050810
  2. REMERON [Concomitant]
  3. GABITRIL [Concomitant]
  4. ASPIRIN [Concomitant]
  5. NORVASC [Concomitant]
  6. INDERAL [Concomitant]
  7. TIMOPTIC [Concomitant]
  8. CITRUCEL (METHYLCELLULOSE) [Concomitant]
  9. MOM (MAGNESIUM HYDROXIDE) [Concomitant]
  10. VITAMIN B100 (CYANOCOBALAMIN) [Concomitant]
  11. FISH OIL (FISH OIL) [Concomitant]
  12. CENTRUM SILVER (CENTRUM SILVER) [Concomitant]
  13. VERSED [Concomitant]

REACTIONS (12)
  - BLISTER [None]
  - BODY TEMPERATURE DECREASED [None]
  - CANDIDIASIS [None]
  - CARDIAC ARREST [None]
  - DIARRHOEA [None]
  - HAEMATOCRIT DECREASED [None]
  - HAEMOGLOBIN DECREASED [None]
  - INTERNATIONAL NORMALISED RATIO INCREASED [None]
  - OXYGEN SATURATION DECREASED [None]
  - PNEUMONIA ASPIRATION [None]
  - POST PROCEDURAL COMPLICATION [None]
  - PROCEDURAL HYPOTENSION [None]
